FAERS Safety Report 20445465 (Version 1)
Quarter: 2022Q1

REPORT INFORMATION
  Report Type: Spontaneous
  Country: IN (occurrence: IN)
  Receive Date: 20220208
  Receipt Date: 20220208
  Transmission Date: 20220423
  Serious: Yes (Hospitalization, Other)
  Sender: FDA-Public Use
  Company Number: IN-MLMSERVICE-20220120-3326739-1

PATIENT
  Age: 40 Year
  Sex: Female

DRUGS (4)
  1. DOXORUBICIN HYDROCHLORIDE [Suspect]
     Active Substance: DOXORUBICIN HYDROCHLORIDE
     Indication: Hormone receptor positive HER2 negative breast cancer
     Dosage: 4 CYCLIC
  2. CYCLOPHOSPHAMIDE [Suspect]
     Active Substance: CYCLOPHOSPHAMIDE
     Indication: Hormone receptor positive HER2 negative breast cancer
     Dosage: 4 CYCLIC
  3. DOCETAXEL [Suspect]
     Active Substance: DOCETAXEL
     Indication: Hormone receptor positive HER2 negative breast cancer
     Dosage: 4 CYCLIC
  4. TAMOXIFEN [Concomitant]
     Active Substance: TAMOXIFEN
     Indication: Hormone receptor positive HER2 negative breast cancer
     Dosage: UNK

REACTIONS (4)
  - Blindness [Unknown]
  - Subarachnoid haemorrhage [Unknown]
  - Second primary malignancy [Unknown]
  - Acute promyelocytic leukaemia [Unknown]
